FAERS Safety Report 8375864-X (Version None)
Quarter: 2012Q1

REPORT INFORMATION
  Report Type: 
  Country: None (occurrence: None)
  Receive Date: 20120323
  Receipt Date: 20110920
  Transmission Date: 20120608
  Serious: Yes (Hospitalization, Other)
  Sender: FDA-Public Use
  Company Number: 163-21880-11071400

PATIENT
  Age: 78 Year
  Sex: Female

DRUGS (8)
  1. REVLIMID [Suspect]
     Indication: MULTIPLE MYELOMA
     Dosage: 25 MG, DAILY X 21 DAYS, PO, 5 MG, 1 IN 1 D, PO, 25 MG,1 IN 1 D, PO
     Route: 048
     Dates: start: 20110916
  2. REVLIMID [Suspect]
     Indication: MULTIPLE MYELOMA
     Dosage: 25 MG, DAILY X 21 DAYS, PO, 5 MG, 1 IN 1 D, PO, 25 MG,1 IN 1 D, PO
     Route: 048
     Dates: start: 20100127, end: 20110801
  3. REVLIMID [Suspect]
     Indication: MULTIPLE MYELOMA
     Dosage: 25 MG, DAILY X 21 DAYS, PO, 5 MG, 1 IN 1 D, PO, 25 MG,1 IN 1 D, PO
     Route: 048
     Dates: start: 20091101
  4. REVLIMID [Suspect]
  5. ASPIRIN [Concomitant]
  6. DEXAMETHOSONE (DEXAMETHASONE) [Concomitant]
  7. METOPROLOL TARTRATE [Suspect]
     Indication: PRODUCT USED FOR UNKNOWN INDICATION
  8. SYNTHROID [Concomitant]

REACTIONS (5)
  - FATIGUE [None]
  - DYSPNOEA [None]
  - PURPURA [None]
  - PULMONARY EMBOLISM [None]
  - FEELING COLD [None]
